FAERS Safety Report 17539099 (Version 1)
Quarter: 2020Q1

REPORT INFORMATION
  Report Type: Spontaneous
  Country: GB (occurrence: GB)
  Receive Date: 20200313
  Receipt Date: 20200313
  Transmission Date: 20200409
  Serious: Yes (Hospitalization)
  Sender: FDA-Public Use
  Company Number: GB-JNJFOC-20200305258

PATIENT
  Age: 78 Year
  Sex: Female

DRUGS (9)
  1. RIVAROXABAN [Suspect]
     Active Substance: RIVAROXABAN
     Indication: ATRIAL FIBRILLATION
     Route: 048
     Dates: start: 20191216, end: 20191231
  2. FUROSEMIDE. [Concomitant]
     Active Substance: FUROSEMIDE
  3. SALBUTAMOL [Concomitant]
     Active Substance: ALBUTEROL
  4. PREDNISOLONE. [Concomitant]
     Active Substance: PREDNISOLONE
  5. DIGOXIN. [Concomitant]
     Active Substance: DIGOXIN
  6. ISOSORBIDE MONONITRATE. [Concomitant]
     Active Substance: ISOSORBIDE MONONITRATE
  7. LINAGLIPTIN [Concomitant]
     Active Substance: LINAGLIPTIN
  8. IPRATROPIUM BROMIDE. [Concomitant]
     Active Substance: IPRATROPIUM BROMIDE
  9. BISOPROLOL [Concomitant]
     Active Substance: BISOPROLOL

REACTIONS (3)
  - Hallucination, visual [Recovering/Resolving]
  - Confusional state [Recovering/Resolving]
  - Nightmare [Recovered/Resolved]

NARRATIVE: CASE EVENT DATE: 20191223
